FAERS Safety Report 8941649 (Version 2)
Quarter: 2012Q4

REPORT INFORMATION
  Report Type: 
  Country: US (occurrence: US)
  Receive Date: 20121203
  Receipt Date: 20121228
  Transmission Date: 20130627
  Serious: Yes (Death)
  Sender: FDA-Public Use
  Company Number: US-CELGENEUS-163-21880-12090538

PATIENT
  Age: 80 Year
  Sex: Female

DRUGS (18)
  1. REVLIMID [Suspect]
     Indication: MULTIPLE MYELOMA
     Dosage: 25 Milligram
     Route: 048
     Dates: start: 201111, end: 20120824
  2. ATIVAN [Concomitant]
     Indication: DRUG USE FOR UNKNOWN INDICATION
     Route: 065
  3. ROXANOL [Concomitant]
     Indication: PAIN
     Route: 065
  4. DILAUDID [Concomitant]
     Indication: DRUG USE FOR UNKNOWN INDICATION
     Route: 041
  5. HALDOL [Concomitant]
     Indication: DRUG USE FOR UNKNOWN INDICATION
     Route: 065
  6. AMITRIPTYLINE HCL [Concomitant]
     Indication: DRUG USE FOR UNKNOWN INDICATION
     Dosage: 50 Milligram
     Route: 048
  7. ASPIRIN [Concomitant]
     Indication: DRUG USE FOR UNKNOWN INDICATION
     Dosage: 81 Milligram
     Route: 048
  8. COLACE [Concomitant]
     Indication: DRUG USE FOR UNKNOWN INDICATION
     Dosage: 100 Milligram
     Route: 048
  9. COMPAZINE [Concomitant]
     Indication: DRUG USE FOR UNKNOWN INDICATION
     Dosage: 10 Milligram
     Route: 048
  10. FENTANYL [Concomitant]
     Indication: DRUG USE FOR UNKNOWN INDICATION
     Dosage: 25 Microgram
     Route: 062
  11. KLOR-CON [Concomitant]
     Indication: DRUG USE FOR UNKNOWN INDICATION
     Dosage: 160 Milliequivalents
     Route: 048
  12. LORTAB 5 [Concomitant]
     Indication: DRUG USE FOR UNKNOWN INDICATION
     Dosage: 5 Milligram
     Route: 048
  13. MIRALAX [Concomitant]
     Indication: DRUG USE FOR UNKNOWN INDICATION
     Route: 048
  14. NEURONTIN [Concomitant]
     Indication: DRUG USE FOR UNKNOWN INDICATION
     Dosage: 1200 Milligram
     Route: 048
  15. PRAVACHOL [Concomitant]
     Indication: DRUG USE FOR UNKNOWN INDICATION
     Dosage: 40 Milligram
     Route: 048
  16. PROMETHAZINE HCL [Concomitant]
     Indication: DRUG USE FOR UNKNOWN INDICATION
     Dosage: 25 Milligram
     Route: 048
  17. RESTORIL [Concomitant]
     Indication: DRUG USE FOR UNKNOWN INDICATION
     Dosage: 15 Milligram
     Route: 048
  18. TENORETIC 50/25 [Concomitant]
     Indication: DRUG USE FOR UNKNOWN INDICATION
     Dosage: 50/25mg
     Route: 048

REACTIONS (1)
  - Plasma cell myeloma [Fatal]
